FAERS Safety Report 4694281-7 (Version None)
Quarter: 2005Q2

REPORT INFORMATION
  Report Type: 
  Country: None (occurrence: None)
  Receive Date: 20050620
  Receipt Date: 20050527
  Transmission Date: 20051028
  Serious: Yes (Death)
  Sender: FDA-Public Use
  Company Number: PHHO2005JP08509

PATIENT
  Age: 85 Year
  Sex: Female

DRUGS (6)
  1. LOCHOL [Concomitant]
     Indication: HYPERCHOLESTEROLAEMIA
     Dates: start: 19980806, end: 20041014
  2. ITOROL [Concomitant]
     Indication: REFLUX OESOPHAGITIS
     Dates: start: 19961211, end: 20041014
  3. OMEPRAZOLE [Concomitant]
     Indication: OEDEMA PERIPHERAL
     Dates: start: 20030117, end: 20041014
  4. NORVASC [Concomitant]
     Indication: HYPERTENSION
     Dates: start: 19961211, end: 20041014
  5. LASIX [Concomitant]
     Indication: OEDEMA PERIPHERAL
     Dates: start: 20040304, end: 20041014
  6. DIOVAN [Suspect]
     Indication: HYPERTENSION
     Dosage: 80 MG, QD
     Route: 048
     Dates: start: 20040304, end: 20041014

REACTIONS (4)
  - ACUTE MYOCARDIAL INFARCTION [None]
  - ANGINA PECTORIS [None]
  - PAIN [None]
  - RESPIRATORY ARREST [None]
